FAERS Safety Report 9899038 (Version 1)
Quarter: 2014Q1

REPORT INFORMATION
  Report Type: Spontaneous
  Country: US (occurrence: US)
  Receive Date: 20140214
  Receipt Date: 20140214
  Transmission Date: 20141002
  Serious: Yes (Life-Threatening, Hospitalization, Other)
  Sender: FDA-Public Use
  Company Number: US-ELI_LILLY_AND_COMPANY-US201402003207

PATIENT
  Sex: Male

DRUGS (2)
  1. HUMALOG 25% LISPRO, 75% NPL [Suspect]
     Indication: TYPE 2 DIABETES MELLITUS
     Dosage: 50 U, TID
     Route: 065
     Dates: start: 2008
  2. HUMALOG 25% LISPRO, 75% NPL [Suspect]
     Dosage: 50 U, TID
     Route: 065
     Dates: start: 2008

REACTIONS (10)
  - Myocardial infarction [Unknown]
  - Pleural effusion [Unknown]
  - Heart injury [Unknown]
  - Renal impairment [Unknown]
  - Dyspnoea exertional [Not Recovered/Not Resolved]
  - Skin ulcer [Not Recovered/Not Resolved]
  - Malaise [Unknown]
  - Heart rate increased [Unknown]
  - Procedural pain [Unknown]
  - Infection [Unknown]
